FAERS Safety Report 7929575-2 (Version None)
Quarter: 2011Q4

REPORT INFORMATION
  Report Type: 
  Country: None (occurrence: None)
  Receive Date: 20111108
  Receipt Date: 20110330
  Transmission Date: 20120403
  Serious: Yes (Other)
  Sender: FDA-Public Use
  Company Number: PHHY2011US26721

PATIENT
  Age: 55 Year
  Sex: Male

DRUGS (3)
  1. TAXOTERE [Concomitant]
  2. ZOMETA [Suspect]
     Indication: METASTASES TO BONE
     Dosage: 4 MG, INTRAVENOUS
     Route: 042
     Dates: start: 20081001, end: 20110315
  3. TAMOXIFEN CITRATE [Concomitant]

REACTIONS (2)
  - RENAL IMPAIRMENT [None]
  - NEOPLASM MALIGNANT [None]
